FAERS Safety Report 4427359-3 (Version None)
Quarter: 2004Q3

REPORT INFORMATION
  Report Type: 
  Country: None (occurrence: None)
  Receive Date: 20040816
  Receipt Date: 20040816
  Transmission Date: 20050211
  Serious: Yes (Other)
  Sender: FDA-Public Use
  Company Number: None

PATIENT
  Age: 44 Year
  Sex: Female
  Weight: 56.6996 kg

DRUGS (1)
  1. SINGULAIR [Suspect]
     Indication: NASAL CONGESTION
     Dosage: 10 MG PO QD
     Route: 048
     Dates: start: 20040727, end: 20040803

REACTIONS (1)
  - HEADACHE [None]
